FAERS Safety Report 5735973-8 (Version None)
Quarter: 2008Q2

REPORT INFORMATION
  Report Type: 
  Country: None (occurrence: None)
  Receive Date: 20080513
  Receipt Date: 20080506
  Transmission Date: 20081010
  Serious: Yes (Other)
  Sender: FDA-Public Use
  Company Number: US-JNJFOC-20080501192

PATIENT
  Sex: Male
  Weight: 67.59 kg

DRUGS (2)
  1. REMICADE [Suspect]
     Dosage: 3 YEARS
     Route: 042
  2. REMICADE [Suspect]
     Indication: RHEUMATOID ARTHRITIS
     Dosage: 3 YEARS
     Route: 042

REACTIONS (1)
  - SQUAMOUS CELL CARCINOMA [None]
